FAERS Safety Report 16549174 (Version 2)
Quarter: 2019Q4

REPORT INFORMATION
  Report Type: Spontaneous
  Country: US (occurrence: US)
  Receive Date: 20190709
  Receipt Date: 20191217
  Transmission Date: 20200122
  Serious: Yes (Other)
  Sender: FDA-Public Use
  Company Number: US-ASTRAZENECA-2018SF47648

PATIENT
  Age: 23192 Day
  Sex: Male

DRUGS (40)
  1. METHOCARBAMOL. [Concomitant]
     Active Substance: METHOCARBAMOL
     Route: 065
  2. NEXIUM [Suspect]
     Active Substance: ESOMEPRAZOLE MAGNESIUM
     Indication: GASTROOESOPHAGEAL REFLUX DISEASE
     Route: 048
  3. ASPIRIN. [Concomitant]
     Active Substance: ASPIRIN
     Route: 065
     Dates: start: 2004
  4. CARISOPRODOL. [Concomitant]
     Active Substance: CARISOPRODOL
     Route: 048
  5. JANUVIA [Concomitant]
     Active Substance: SITAGLIPTIN PHOSPHATE
     Route: 048
  6. INVOKANA [Concomitant]
     Active Substance: CANAGLIFLOZIN
     Indication: DIABETES MELLITUS
     Route: 065
     Dates: start: 2008
  7. MELOXICAM. [Concomitant]
     Active Substance: MELOXICAM
     Indication: PAIN
     Route: 065
     Dates: start: 2010
  8. CLARITIN [Concomitant]
     Active Substance: LORATADINE
     Route: 065
  9. BEXTRA [Concomitant]
     Active Substance: VALDECOXIB
     Route: 048
  10. NIASPAN [Concomitant]
     Active Substance: NIACIN
     Route: 065
  11. NEXIUM [Suspect]
     Active Substance: ESOMEPRAZOLE MAGNESIUM
     Indication: GASTROOESOPHAGEAL REFLUX DISEASE
     Route: 048
     Dates: start: 2000, end: 2015
  12. GABAPENTIN. [Concomitant]
     Active Substance: GABAPENTIN
     Indication: NERVE INJURY
     Route: 065
     Dates: start: 2017
  13. BISOPROLOL [Concomitant]
     Active Substance: BISOPROLOL
     Indication: HYPERTENSION
     Route: 065
     Dates: start: 2018
  14. LISINOPRIL. [Concomitant]
     Active Substance: LISINOPRIL
     Route: 048
  15. AVANDIA [Concomitant]
     Active Substance: ROSIGLITAZONE MALEATE
     Route: 048
  16. ACTOS [Concomitant]
     Active Substance: PIOGLITAZONE HYDROCHLORIDE
     Route: 048
  17. LIPITOR [Concomitant]
     Active Substance: ATORVASTATIN CALCIUM
     Route: 048
  18. KETOCONAZOLE. [Concomitant]
     Active Substance: KETOCONAZOLE
  19. NEXIUM [Suspect]
     Active Substance: ESOMEPRAZOLE MAGNESIUM
     Indication: GASTROOESOPHAGEAL REFLUX DISEASE
     Dosage: GENERIC
     Route: 048
  20. NEXIUM 24HR [Suspect]
     Active Substance: ESOMEPRAZOLE MAGNESIUM
     Route: 048
  21. HYDRALAZINE [Concomitant]
     Active Substance: HYDRALAZINE HYDROCHLORIDE
     Indication: HYPERTENSION
     Route: 065
     Dates: start: 2018
  22. AZITHROMYCIN ANHYDROUS. [Concomitant]
     Active Substance: AZITHROMYCIN ANHYDROUS
     Indication: ANTIBIOTIC THERAPY
     Route: 065
  23. MULTIVITAMIN [Concomitant]
     Active Substance: VITAMINS
     Indication: ROUTINE HEALTH MAINTENANCE
     Route: 065
     Dates: start: 2010
  24. TYLENOL [Concomitant]
     Active Substance: ACETAMINOPHEN
     Indication: PAIN
     Route: 065
  25. PROMETHAZINE [Concomitant]
     Active Substance: PROMETHAZINE HYDROCHLORIDE
     Route: 065
  26. GLIPIZIDE. [Concomitant]
     Active Substance: GLIPIZIDE
     Route: 065
  27. METFORMIN [Concomitant]
     Active Substance: METFORMIN HYDROCHLORIDE
     Route: 065
  28. CADUET [Concomitant]
     Active Substance: AMLODIPINE BESYLATE\ATORVASTATIN CALCIUM
     Indication: BLOOD CHOLESTEROL
     Route: 065
     Dates: start: 2008
  29. FUROSEMIDE. [Concomitant]
     Active Substance: FUROSEMIDE
     Indication: OEDEMA
     Route: 065
     Dates: start: 2018
  30. PAPAVERINE [Concomitant]
     Active Substance: PAPAVERINE
  31. VALTREX [Concomitant]
     Active Substance: VALACYCLOVIR HYDROCHLORIDE
     Route: 065
  32. POTASSIUM CHLORIDE. [Concomitant]
     Active Substance: POTASSIUM CHLORIDE
     Route: 065
  33. MUCINEX [Concomitant]
     Active Substance: GUAIFENESIN
     Route: 048
  34. NEXIUM [Suspect]
     Active Substance: ESOMEPRAZOLE MAGNESIUM
     Indication: GASTROOESOPHAGEAL REFLUX DISEASE
     Route: 048
     Dates: start: 2009, end: 2017
  35. ISOSORBIDE. [Concomitant]
     Active Substance: ISOSORBIDE
     Indication: HYPERTENSION
     Route: 065
     Dates: start: 2018
  36. LANTUS [Concomitant]
     Active Substance: INSULIN GLARGINE
     Indication: HYPERTENSION
     Route: 065
     Dates: start: 2018
  37. TOPROL XL [Concomitant]
     Active Substance: METOPROLOL SUCCINATE
     Route: 065
  38. PLAVIX [Concomitant]
     Active Substance: CLOPIDOGREL BISULFATE
     Route: 048
  39. BISOPROLOL FUMARATE. [Concomitant]
     Active Substance: BISOPROLOL FUMARATE
     Route: 065
  40. LABETALOL [Concomitant]
     Active Substance: LABETALOL\LABETALOL HYDROCHLORIDE
     Route: 048

REACTIONS (3)
  - Chronic kidney disease [Unknown]
  - End stage renal disease [Unknown]
  - Renal failure [Not Recovered/Not Resolved]

NARRATIVE: CASE EVENT DATE: 20170118
